FAERS Safety Report 7427621-6 (Version None)
Quarter: 2011Q2

REPORT INFORMATION
  Report Type: 
  Country: None (occurrence: None)
  Receive Date: 20110421
  Receipt Date: 20110412
  Transmission Date: 20111010
  Serious: Yes (Hospitalization)
  Sender: FDA-Public Use
  Company Number: US-MYLANLABS-2011S1006605

PATIENT
  Age: 64 Year
  Sex: Male
  Weight: 104.33 kg

DRUGS (4)
  1. IPRATROPIUM BROMIDE AND ALBUTEROL SULFATE [Suspect]
     Indication: ASTHMA
     Dosage: 0.083%
     Route: 055
     Dates: start: 20110215, end: 20110217
  2. IPRATROPIUM BROMIDE AND ALBUTEROL SULFATE [Suspect]
     Indication: BRONCHITIS
     Dosage: 0.083%
     Route: 055
     Dates: start: 20110215, end: 20110217
  3. IPRATROPIUM BROMIDE AND ALBUTEROL SULFATE [Suspect]
     Indication: PULMONARY CONGESTION
     Dosage: 0.083%
     Route: 055
     Dates: start: 20110215, end: 20110217
  4. SINGULAIR [Concomitant]
     Indication: ASTHMA
     Dates: start: 20110115

REACTIONS (8)
  - PAIN [None]
  - NERVE INJURY [None]
  - PULMONARY CONGESTION [None]
  - THROAT IRRITATION [None]
  - DYSPNOEA [None]
  - DRUG INEFFECTIVE [None]
  - LUNG DISORDER [None]
  - TREMOR [None]
